FAERS Safety Report 7559274-0 (Version None)
Quarter: 2011Q2

REPORT INFORMATION
  Report Type: 
  Country: None (occurrence: None)
  Receive Date: 20110613
  Receipt Date: 20110601
  Transmission Date: 20111010
  Serious: Yes (Death)
  Sender: FDA-Public Use
  Company Number: JPI-P-015278

PATIENT
  Age: 34 Year
  Sex: Female

DRUGS (3)
  1. XYREM [Suspect]
     Indication: NARCOLEPSY
     Dosage: 4.5 GM (2.25 GM, 2 IN 1 D), ORAL (TITRATING DOSE), ORAL 9 GM (4.5 GM, 2 IN 1 D) ORAL
     Route: 048
     Dates: start: 20110118, end: 20110101
  2. XYREM [Suspect]
     Indication: NARCOLEPSY
     Dosage: 4.5 GM (2.25 GM, 2 IN 1 D), ORAL (TITRATING DOSE), ORAL 9 GM (4.5 GM, 2 IN 1 D) ORAL
     Route: 048
     Dates: start: 20110101
  3. XYREM [Suspect]
     Indication: NARCOLEPSY
     Dosage: 4.5 GM (2.25 GM, 2 IN 1 D), ORAL (TITRATING DOSE), ORAL 9 GM (4.5 GM, 2 IN 1 D) ORAL
     Route: 048
     Dates: start: 20110101, end: 20110101

REACTIONS (2)
  - ASPIRATION [None]
  - DIARRHOEA [None]
